FAERS Safety Report 21372396 (Version 6)
Quarter: 2024Q1

REPORT INFORMATION
  Report Type: Spontaneous
  Country: CA (occurrence: None)
  Receive Date: 20220924
  Receipt Date: 20240216
  Transmission Date: 20240409
  Serious: Yes (Death, Hospitalization)
  Sender: FDA-Public Use
  Company Number: CA-ROCHE-3145511

PATIENT
  Age: 44 Year
  Sex: Female
  Weight: 63 kg

DRUGS (6)
  1. ACTEMRA [Suspect]
     Active Substance: TOCILIZUMAB
     Indication: Rheumatoid arthritis
     Route: 065
  2. RITUXIMAB [Suspect]
     Active Substance: RITUXIMAB
     Indication: Rheumatoid arthritis
     Route: 042
  3. RITUXIMAB [Suspect]
     Active Substance: RITUXIMAB
     Route: 042
  4. ACTEMRA [Suspect]
     Active Substance: TOCILIZUMAB
     Indication: Rheumatoid arthritis
     Route: 058
  5. RITUXIMAB [Suspect]
     Active Substance: RITUXIMAB
     Indication: Rheumatoid arthritis
     Route: 065
  6. BACTRIM [Suspect]
     Active Substance: SULFAMETHOXAZOLE\TRIMETHOPRIM
     Indication: Product used for unknown indication
     Route: 065

REACTIONS (95)
  - Tenosynovitis stenosans [Fatal]
  - Abdominal pain [Fatal]
  - Swelling face [Fatal]
  - Hand deformity [Fatal]
  - Drug intolerance [Fatal]
  - Cushingoid [Fatal]
  - Treatment failure [Fatal]
  - White blood cell count decreased [Fatal]
  - Rheumatoid nodule [Fatal]
  - Photophobia [Fatal]
  - Antinuclear antibody positive [Fatal]
  - Pleuritic pain [Fatal]
  - Red blood cell count decreased [Fatal]
  - Rheumatoid arthritis [Fatal]
  - Wheezing [Fatal]
  - Rash [Fatal]
  - Flank pain [Fatal]
  - Deformity [Fatal]
  - Liver disorder [Fatal]
  - Pain in extremity [Fatal]
  - Eye irritation [Fatal]
  - Interstitial lung disease [Fatal]
  - Impaired work ability [Fatal]
  - Lung disorder [Fatal]
  - Musculoskeletal stiffness [Fatal]
  - Joint swelling [Fatal]
  - Ocular hyperaemia [Fatal]
  - Conjunctivitis [Fatal]
  - Pulmonary toxicity [Fatal]
  - Pruritus [Fatal]
  - Inflammation [Fatal]
  - Allergy to chemicals [Fatal]
  - Fatigue [Fatal]
  - Dizziness [Fatal]
  - Arthritis [Fatal]
  - Haemoglobin decreased [Fatal]
  - Nausea [Fatal]
  - Joint effusion [Fatal]
  - Joint range of motion decreased [Fatal]
  - Upper respiratory tract infection [Fatal]
  - Infection [Fatal]
  - Eye pain [Fatal]
  - Drug ineffective [Fatal]
  - Neoplasm malignant [Fatal]
  - Crepitations [Fatal]
  - Pain [Fatal]
  - Myalgia [Fatal]
  - Erythema [Fatal]
  - Skin ulcer [Fatal]
  - Dry mouth [Fatal]
  - Diarrhoea [Fatal]
  - Visual impairment [Fatal]
  - Nodule [Fatal]
  - Synovial cyst [Fatal]
  - Back pain [Fatal]
  - Therapeutic product effect decreased [Fatal]
  - Dry eye [Fatal]
  - Tenosynovitis [Fatal]
  - Musculoskeletal pain [Fatal]
  - Bursitis [Fatal]
  - Feeling jittery [Fatal]
  - Scleritis [Fatal]
  - Feeling abnormal [Fatal]
  - Peripheral swelling [Fatal]
  - Pneumonia [Fatal]
  - Atelectasis [Fatal]
  - Rash maculo-papular [Fatal]
  - Thrombosis [Fatal]
  - C-reactive protein increased [Fatal]
  - Fibromyalgia [Fatal]
  - Muscular weakness [Fatal]
  - Bone density decreased [Fatal]
  - Synovial fluid analysis [Fatal]
  - Malaise [Fatal]
  - Arthralgia [Fatal]
  - Rash pruritic [Fatal]
  - Tenderness [Fatal]
  - Dyspnoea [Fatal]
  - Ulcer [Fatal]
  - Swelling [Fatal]
  - Synovial disorder [Fatal]
  - Contraindicated product administered [Fatal]
  - Off label use [Fatal]
  - Condition aggravated [Fatal]
  - Drug hypersensitivity [Fatal]
  - Hepatic enzyme decreased [Fatal]
  - Hepatotoxicity [Fatal]
  - Joint injury [Fatal]
  - Joint stiffness [Fatal]
  - Quality of life decreased [Fatal]
  - Red blood cell sedimentation rate decreased [Fatal]
  - Swelling [Fatal]
  - Therapeutic product effect incomplete [Fatal]
  - Gastrointestinal toxicity [Fatal]
  - Therapy non-responder [Fatal]
